FAERS Safety Report 9645458 (Version 2)
Quarter: 2013Q4

REPORT INFORMATION
  Report Type: Spontaneous
  Country: US (occurrence: None)
  Receive Date: 20131023
  Receipt Date: 20131108
  Transmission Date: 20140711
  Serious: Yes (Death, Life-Threatening, Hospitalization)
  Sender: FDA-Public Use
  Company Number: 151875

PATIENT
  Age: 64 Year
  Sex: Male

DRUGS (1)
  1. CYTARABINE [Suspect]
     Indication: ACUTE MYELOID LEUKAEMIA
     Dosage: 10.8 MG, INJECTION
     Dates: start: 201308, end: 20130913

REACTIONS (7)
  - Septic shock [None]
  - Neutropenia [None]
  - Mucosal inflammation [None]
  - Malignant neoplasm progression [None]
  - Cardiac failure acute [None]
  - Cholecystitis [None]
  - Atelectasis [None]
